FAERS Safety Report 26050762 (Version 2)
Quarter: 2025Q4

REPORT INFORMATION
  Report Type: Spontaneous
  Country: JP (occurrence: JP)
  Receive Date: 20251116
  Receipt Date: 20251211
  Transmission Date: 20260118
  Serious: Yes (Other)
  Sender: NOVARTIS
  Company Number: JP-002147023-NVSJ2025JP010932

PATIENT
  Age: 75 Year
  Sex: Male

DRUGS (1)
  1. ENTRESTO [Suspect]
     Active Substance: SACUBITRIL\VALSARTAN
     Indication: Hypertension
     Dosage: 200 MG, QD
     Route: 048
     Dates: start: 2023, end: 2023

REACTIONS (1)
  - Renal impairment [Recovered/Resolved]

NARRATIVE: CASE EVENT DATE: 20230101
